FAERS Safety Report 18035857 (Version 2)
Quarter: 2020Q3

REPORT INFORMATION
  Report Type: Report from Study
  Country: NZ (occurrence: NZ)
  Receive Date: 20200717
  Receipt Date: 20200804
  Transmission Date: 20201103
  Serious: Yes (Hospitalization)
  Sender: FDA-Public Use
  Company Number: NZ-ROCHE-2640986

PATIENT
  Age: 80 Year
  Sex: Male
  Weight: 72 kg

DRUGS (11)
  1. THYROXINE SODIUM [Concomitant]
     Active Substance: LEVOTHYROXINE SODIUM
  2. ATORVASTATIN [Concomitant]
     Active Substance: ATORVASTATIN
  3. CODEINE PHOSPHATE [Concomitant]
     Active Substance: CODEINE PHOSPHATE
  4. ATEZOLIZUMAB. [Suspect]
     Active Substance: ATEZOLIZUMAB
     Indication: HEPATOCELLULAR CARCINOMA
     Dosage: ON 02/JUN/2020, THE PATIENT RECEIVED THE MOST RECENT DOSE OF ATEZOLIZUMAB PRIOR TO ADVERSE EVENT ONS
     Route: 042
     Dates: start: 20200218, end: 20200602
  5. DOXAZOSIN [Concomitant]
     Active Substance: DOXAZOSIN MESYLATE
  6. URSODEOXYCHOLIC ACID [Concomitant]
     Active Substance: URSODIOL
  7. LOPERAMIDE [Concomitant]
     Active Substance: LOPERAMIDE
  8. XL184 [Suspect]
     Active Substance: CABOZANTINIB
     Indication: HEPATOCELLULAR CARCINOMA
     Dosage: ON 11/JUN/2020, THE PATIENT RECEIVED THE MOST RECENT DOSE OF XL184 (CABOZANTINIB) PRIOR TO THE EVENT
     Route: 048
     Dates: start: 20200218
  9. XL184 [Suspect]
     Active Substance: CABOZANTINIB
     Route: 048
  10. PARACETAMOL [Concomitant]
     Active Substance: ACETAMINOPHEN
  11. ONDANSETRON [Concomitant]
     Active Substance: ONDANSETRON

REACTIONS (1)
  - Colitis [Not Recovered/Not Resolved]

NARRATIVE: CASE EVENT DATE: 20200612
